FAERS Safety Report 5354900-9 (Version None)
Quarter: 2007Q2

REPORT INFORMATION
  Report Type: 
  Country: None (occurrence: None)
  Receive Date: 20070611
  Receipt Date: 20070530
  Transmission Date: 20071010
  Serious: Yes (Hospitalization)
  Sender: FDA-Public Use
  Company Number: SUS1-2006-00408

PATIENT
  Age: 61 Year
  Sex: Female
  Weight: 101.6 kg

DRUGS (12)
  1. EQUETRO [Suspect]
     Indication: BIPOLAR DISORDER
     Dosage: 200 MG, 2X/DAY: BID
     Dates: start: 20060220, end: 20060301
  2. LISINOPRIL [Concomitant]
  3. METFORMIN HCL [Concomitant]
  4. EFFEXOR [Concomitant]
  5. METOPROLOL TARTRATE [Concomitant]
  6. LEVOTHYROXINE SODIUM [Concomitant]
  7. HYDROCHLOROTHIAZIDE [Concomitant]
  8. AMBIEN [Concomitant]
  9. SEROQUEL                                          / 01270901/ (QUETIAP [Concomitant]
  10. NEXIUM                                         /01479302/ (ESOMEPRAZOL [Concomitant]
  11. KLONOPIN [Concomitant]
  12. DEPAKOTE [Concomitant]

REACTIONS (20)
  - ADRENAL DISORDER [None]
  - BLOOD PRESSURE DECREASED [None]
  - DEPRESSION [None]
  - DIZZINESS [None]
  - DRUG INEFFECTIVE [None]
  - DRUG INTOLERANCE [None]
  - DRUG TOXICITY [None]
  - ERUCTATION [None]
  - GAIT DISTURBANCE [None]
  - GOITRE [None]
  - HEART RATE INCREASED [None]
  - HYPOTHYROIDISM [None]
  - INCONTINENCE [None]
  - INSOMNIA [None]
  - MICTURITION URGENCY [None]
  - NAUSEA [None]
  - ORTHOSTATIC HYPOTENSION [None]
  - SUICIDE ATTEMPT [None]
  - TREMOR [None]
  - URINARY RETENTION [None]
